FAERS Safety Report 7815273-2 (Version None)
Quarter: 2011Q4

REPORT INFORMATION
  Report Type: 
  Country: None (occurrence: None)
  Receive Date: 20111014
  Receipt Date: 20111005
  Transmission Date: 20120403
  Serious: Yes (Hospitalization, Other)
  Sender: FDA-Public Use
  Company Number: US-ACTELION-A-US2010-40830

PATIENT

DRUGS (1)
  1. TRACLEER [Suspect]
     Indication: RAYNAUD'S PHENOMENON
     Dosage: UNK
     Route: 048
     Dates: start: 20100225

REACTIONS (3)
  - HYPERSENSITIVITY [None]
  - RASH [None]
  - SKIN ULCER [None]
